FAERS Safety Report 9817662 (Version 1)
Quarter: 2013Q4

REPORT INFORMATION
  Report Type: Spontaneous
  Country: US (occurrence: None)
  Receive Date: 20131223
  Receipt Date: 20131223
  Transmission Date: 20140711
  Serious: Yes (Other)
  Sender: FDA-Public Use
  Company Number: 220202

PATIENT
  Age: 52 Year
  Sex: Female

DRUGS (5)
  1. PICATO [Suspect]
     Indication: ACTINIC KERATOSIS
     Dosage: 1 IN 1 D
     Route: 061
     Dates: start: 20130113, end: 20130115
  2. ZOCOR (SIMVASTATIN) [Concomitant]
  3. PREVACID (LANSOPRAZOLE) [Concomitant]
  4. MOBIC (MELOXICAM) [Concomitant]
  5. BIEST (ESTROGEN NOS) [Concomitant]

REACTIONS (2)
  - Periorbital oedema [None]
  - Drug administered at inappropriate site [None]
